FAERS Safety Report 8343076 (Version 4)
Quarter: 2012Q4

REPORT INFORMATION
  Report Type: 
  Country: US (occurrence: US)
  Receive Date: 20120119
  Receipt Date: 20120910
  Transmission Date: 20130627
  Serious: Yes (Other)
  Sender: FDA-Public Use
  Company Number: US-PFIZER INC-2012009623

PATIENT
  Age: 59 Year
  Sex: Female
  Weight: 86.17 kg

DRUGS (7)
  1. LYRICA [Suspect]
     Indication: NEURALGIA
     Dosage: 75 mg, 2x/day
     Dates: start: 201009
  2. CELEBREX [Concomitant]
     Indication: ARTHRALGIA
     Dosage: 200 mg, daily
  3. CELEBREX [Concomitant]
     Dosage: 200 mg, 2x/day
  4. CELEBREX [Concomitant]
     Dosage: 200 mg, daily
  5. NEXIUM [Concomitant]
     Indication: OESOPHAGEAL DISORDER
     Dosage: UNK
  6. RHINOCORT [Concomitant]
     Indication: SINUS DISORDER
     Dosage: 2-3 puffs of an unknown dose, daily
  7. ALBUTEROL [Concomitant]
     Dosage: UNK

REACTIONS (2)
  - Abasia [Unknown]
  - Weight increased [Unknown]
